FAERS Safety Report 21284818 (Version 2)
Quarter: 2022Q3

REPORT INFORMATION
  Report Type: Spontaneous
  Country: DE (occurrence: DE)
  Receive Date: 20220902
  Receipt Date: 20220928
  Transmission Date: 20221026
  Serious: Yes (Other)
  Sender: FDA-Public Use
  Company Number: DE-GE HEALTHCARE-2022CSU005299

PATIENT
  Age: 84 Year
  Sex: Male
  Weight: 75 kg

DRUGS (7)
  1. IOHEXOL [Suspect]
     Active Substance: IOHEXOL
     Indication: Angiocardiogram
     Dosage: 200 ML, SINGLE
     Route: 013
     Dates: start: 20220712, end: 20220712
  2. IOHEXOL [Suspect]
     Active Substance: IOHEXOL
     Indication: Percutaneous coronary intervention
  3. IOHEXOL [Suspect]
     Active Substance: IOHEXOL
     Indication: Coronary artery disease
  4. ASPIRIN [Concomitant]
     Active Substance: ASPIRIN
     Indication: Coronary artery disease
     Dosage: 100 MG
     Route: 048
  5. CLOPIDOGREL [Concomitant]
     Active Substance: CLOPIDOGREL BISULFATE
     Indication: Coronary artery disease
     Dosage: 75 MG
     Route: 048
  6. METFORMIN [Concomitant]
     Active Substance: METFORMIN HYDROCHLORIDE
     Indication: Diabetes mellitus
     Dosage: 1000 MG
     Route: 048
  7. TORSEMIDE [Concomitant]
     Active Substance: TORSEMIDE
     Indication: Renal failure
     Dosage: 10 MG
     Route: 048

REACTIONS (2)
  - Cerebrovascular accident [Recovered/Resolved]
  - Aphasia [Recovered/Resolved]

NARRATIVE: CASE EVENT DATE: 20220712
